FAERS Safety Report 12389223 (Version 2)
Quarter: 2016Q3

REPORT INFORMATION
  Report Type: Spontaneous
  Country: FR (occurrence: FR)
  Receive Date: 20160520
  Receipt Date: 20160809
  Transmission Date: 20161109
  Serious: Yes (Hospitalization)
  Sender: FDA-Public Use
  Company Number: FR-PFIZER INC-2016259516

PATIENT
  Age: 66 Year
  Sex: Male

DRUGS (16)
  1. VANCOMYCINE [Suspect]
     Active Substance: VANCOMYCIN
     Indication: STAPHYLOCOCCAL INFECTION
     Dosage: UNK
     Route: 042
     Dates: start: 20151012, end: 20151018
  2. DALACINE [Suspect]
     Active Substance: CLINDAMYCIN HYDROCHLORIDE
     Indication: DEVICE RELATED SEPSIS
     Dosage: UNK
     Route: 042
     Dates: start: 20151018, end: 20151018
  3. CLOXACILLINE [Suspect]
     Active Substance: CLOXACILLIN
     Indication: DEVICE RELATED SEPSIS
     Dosage: UNK
     Route: 048
     Dates: start: 20151019, end: 20151026
  4. GENTAMICINE PANPHARMA [Suspect]
     Active Substance: GENTAMICIN
     Indication: DEVICE RELATED SEPSIS
     Dosage: UNK
     Route: 042
     Dates: start: 20151018, end: 20151018
  5. INEGY [Concomitant]
     Active Substance: EZETIMIBE\SIMVASTATIN
     Dosage: UNK
  6. TAZOCILLINE [Suspect]
     Active Substance: PIPERACILLIN SODIUM\TAZOBACTAM SODIUM
     Indication: STAPHYLOCOCCAL INFECTION
     Dosage: UNK
     Route: 042
     Dates: start: 20151012, end: 20151018
  7. INEXIUM /01479302/ [Concomitant]
     Active Substance: ESOMEPRAZOLE MAGNESIUM
     Dosage: UNK
  8. DEROXAT [Concomitant]
     Active Substance: PAROXETINE HYDROCHLORIDE
     Dosage: 20 MG, 1X/DAY
     Route: 048
  9. MIOREL [Concomitant]
     Active Substance: THIOCOLCHICOSIDE
     Dosage: UNK
  10. RIFAMPICINE [Suspect]
     Active Substance: RIFAMPIN
     Indication: DEVICE RELATED SEPSIS
     Dosage: 900 MG, 1X/DAY
     Route: 048
     Dates: start: 20151019, end: 20151117
  11. ADANCOR [Concomitant]
     Active Substance: NICORANDIL
     Dosage: 10 MG, 2X/DAY
     Route: 048
  12. GLUCOR [Concomitant]
     Active Substance: ACARBOSE
     Dosage: 100 MG, 3X/DAY
     Route: 048
  13. KARDEGIC [Concomitant]
     Active Substance: ASPIRIN LYSINE
     Dosage: 75 MG, DAILY
  14. TEGRETOL [Concomitant]
     Active Substance: CARBAMAZEPINE
     Dosage: 200 MG, 2X/DAY
     Route: 048
     Dates: start: 20151119
  15. TEGRETOL [Concomitant]
     Active Substance: CARBAMAZEPINE
     Dosage: 200 MG, 2X/DAY
     Route: 048
     Dates: end: 20151027
  16. COUMADINE [Concomitant]
     Active Substance: WARFARIN SODIUM
     Dosage: 7 MG / 8MG EVERY OTHER DAY
     Route: 048
     Dates: end: 20151018

REACTIONS (4)
  - Renal tubular necrosis [Recovering/Resolving]
  - Acute kidney injury [Recovered/Resolved]
  - Gamma-glutamyltransferase increased [Recovered/Resolved]
  - Condition aggravated [Recovered/Resolved]

NARRATIVE: CASE EVENT DATE: 201510
